FAERS Safety Report 5112879-9 (Version None)
Quarter: 2006Q3

REPORT INFORMATION
  Report Type: 
  Country: None (occurrence: None)
  Receive Date: 20060921
  Receipt Date: 20060921
  Transmission Date: 20061208
  Serious: Yes (Hospitalization)
  Sender: FDA-Public Use
  Company Number: None

PATIENT
  Age: 6 Year
  Sex: Female
  Weight: 15 kg

DRUGS (5)
  1. REMODULIN [Suspect]
     Indication: PULMONARY HYPERTENSION
     Dosage: 69 NG/KG/MIN AT 38 ML/24 HOURS CONTINUOUS IV DRIP
     Route: 041
     Dates: start: 20040909, end: 20060920
  2. REVATIO [Concomitant]
  3. COUMADIN [Concomitant]
  4. MULTI-VITAMIN [Concomitant]
  5. FLONASE [Concomitant]

REACTIONS (3)
  - BLOOD CULTURE POSITIVE [None]
  - CENTRAL LINE INFECTION [None]
  - MYCOBACTERIAL INFECTION [None]
